FAERS Safety Report 6571488-5 (Version None)
Quarter: 2010Q1

REPORT INFORMATION
  Report Type: 
  Country: None (occurrence: None)
  Receive Date: 20100205
  Receipt Date: 20100125
  Transmission Date: 20100710
  Serious: Yes (Other)
  Sender: FDA-Public Use
  Company Number: US-JNJFOC-20091207813

PATIENT
  Sex: Female
  Weight: 53 kg

DRUGS (12)
  1. REMICADE [Suspect]
     Indication: RHEUMATOID ARTHRITIS
     Route: 042
  2. REMICADE [Suspect]
     Route: 042
  3. LEVOTHYROXINE SODIUM [Concomitant]
  4. MONOPRIL [Concomitant]
  5. ATENOLOL [Concomitant]
  6. FOSAMAX [Concomitant]
  7. SIMVASTATIN [Concomitant]
  8. SULFASALAZINE [Concomitant]
  9. CALTRATE [Concomitant]
  10. VITAMIN D [Concomitant]
  11. HYDROCHLOROTHIAZIDE [Concomitant]
  12. TYLENOL-500 [Concomitant]

REACTIONS (1)
  - BREAST CANCER IN SITU [None]
